FAERS Safety Report 25487178 (Version 8)
Quarter: 2025Q4

REPORT INFORMATION
  Report Type: Report from Study
  Country: US (occurrence: US)
  Receive Date: 20250627
  Receipt Date: 20251224
  Transmission Date: 20260118
  Serious: Yes (Other)
  Sender: INSMED
  Company Number: US-INSMED, INC.-2025-02155-US

PATIENT
  Sex: Female

DRUGS (9)
  1. ARIKAYCE [Suspect]
     Active Substance: AMIKACIN
     Indication: Mycobacterium avium complex infection
     Dosage: 590 MILLIGRAM, QD
     Route: 055
     Dates: start: 20250529, end: 20250615
  2. ARIKAYCE [Suspect]
     Active Substance: AMIKACIN
     Indication: Mycobacterium abscessus infection
     Dosage: 590 MILLIGRAM, QOD
     Route: 055
     Dates: start: 20250709, end: 2025
  3. ARIKAYCE [Suspect]
     Active Substance: AMIKACIN
     Dosage: 590 MILLIGRAM, UNK
     Route: 055
     Dates: start: 20250801, end: 20251211
  4. AMIKACIN [Suspect]
     Active Substance: AMIKACIN
     Indication: Mycobacterium avium complex infection
     Dosage: 500MG/100ML, TIW
     Route: 042
  5. AMIKACIN [Suspect]
     Active Substance: AMIKACIN
     Indication: Mycobacterium abscessus infection
  6. OMADACYCLINE [Concomitant]
     Active Substance: OMADACYCLINE
     Indication: Mycobacterium avium complex infection
     Dosage: UNK, QD
     Route: 065
  7. OMADACYCLINE [Concomitant]
     Active Substance: OMADACYCLINE
     Indication: Mycobacterium abscessus infection
  8. CLOFAZIMINE [Concomitant]
     Active Substance: CLOFAZIMINE
     Indication: Mycobacterium avium complex infection
     Dosage: UNK, QD
     Route: 065
  9. CLOFAZIMINE [Concomitant]
     Active Substance: CLOFAZIMINE
     Indication: Mycobacterium abscessus infection

REACTIONS (17)
  - Pulmonary oedema [Recovered/Resolved]
  - Drug interaction [Unknown]
  - Rales [Recovered/Resolved]
  - Rales [Recovering/Resolving]
  - Adverse drug reaction [Unknown]
  - Pyrexia [Recovered/Resolved]
  - Throat irritation [Not Recovered/Not Resolved]
  - Aphonia [Recovered/Resolved]
  - Haemoptysis [Recovered/Resolved]
  - Hypoacusis [Unknown]
  - Hypersensitivity [Recovered/Resolved]
  - Dyspnoea [Unknown]
  - Dysphonia [Not Recovered/Not Resolved]
  - Fatigue [Not Recovered/Not Resolved]
  - Device issue [Unknown]
  - Drug dose omission by device [Unknown]
  - Off label use [Unknown]

NARRATIVE: CASE EVENT DATE: 20250101
